FAERS Safety Report 9180573 (Version 1)
Quarter: 2013Q1

REPORT INFORMATION
  Report Type: Spontaneous
  Country: US (occurrence: None)
  Receive Date: 20130320
  Receipt Date: 20130320
  Transmission Date: 20140127
  Serious: Yes (Hospitalization)
  Sender: FDA-Public Use
  Company Number: 2010US-39532

PATIENT
  Age: 74 Year
  Sex: Female

DRUGS (3)
  1. CITALOPRAM [Suspect]
     Indication: PRODUCT USED FOR UNKNOWN INDICATION
  2. RISPERIDONE [Suspect]
     Indication: AGGRESSION
     Route: 048
  3. RISPERIDONE [Suspect]
     Indication: AGGRESSION
     Route: 048

REACTIONS (13)
  - Drug interaction [None]
  - Serotonin syndrome [None]
  - Blood creatinine [None]
  - Urinary tract infection [None]
  - Blood thyroid stimulating hormone increased [None]
  - Renal failure acute [None]
  - Neuromyopathy [None]
  - Tremor [None]
  - Hyperreflexia [None]
  - Myoclonus [None]
  - Clonus [None]
  - Autonomic nervous system imbalance [None]
  - Tachycardia [None]
